APPROVED DRUG PRODUCT: DEXMETHYLPHENIDATE HYDROCHLORIDE
Active Ingredient: DEXMETHYLPHENIDATE HYDROCHLORIDE
Strength: 5MG
Dosage Form/Route: CAPSULE, EXTENDED RELEASE;ORAL
Application: A206734 | Product #001
Applicant: SUN PHARMACEUTICAL INDUSTRIES INC
Approved: Nov 5, 2021 | RLD: No | RS: No | Type: DISCN